FAERS Safety Report 23075261 (Version 1)
Quarter: 2023Q4

REPORT INFORMATION
  Report Type: Spontaneous
  Country: US (occurrence: None)
  Receive Date: 20231017
  Receipt Date: 20231017
  Transmission Date: 20240110
  Serious: Yes (Hospitalization)
  Sender: FDA-Public Use
  Company Number: None

PATIENT
  Age: 76 Year
  Sex: Female

DRUGS (1)
  1. BELATACEPT [Suspect]
     Active Substance: BELATACEPT
     Indication: Renal transplant

REACTIONS (5)
  - Asthenia [None]
  - Mental status changes [None]
  - Blood creatine increased [None]
  - Pneumonia [None]
  - Cytomegalovirus test positive [None]

NARRATIVE: CASE EVENT DATE: 20230925
